FAERS Safety Report 5456562-9 (Version None)
Quarter: 2007Q3

REPORT INFORMATION
  Report Type: 
  Country: None (occurrence: None)
  Receive Date: 20070918
  Receipt Date: 20070912
  Transmission Date: 20080115
  Serious: No
  Sender: FDA-Public Use
  Company Number: D0054142A

PATIENT
  Age: 50 Year
  Sex: Female

DRUGS (1)
  1. VIANI [Suspect]
     Route: 055

REACTIONS (3)
  - ORAL FUNGAL INFECTION [None]
  - PATHOLOGICAL FRACTURE [None]
  - TOOTH FRACTURE [None]
